FAERS Safety Report 8743114 (Version 2)
Quarter: 2012Q4

REPORT INFORMATION
  Report Type: Spontaneous
  Country: FR (occurrence: None)
  Receive Date: 20120803
  Receipt Date: 20121010
  Transmission Date: 20130627
  Serious: Yes (Death, Hospitalization)
  Sender: FDA-Public Use
  Company Number: DSA_58727_2012

PATIENT
  Age: 69 Year
  Sex: Female

DRUGS (4)
  1. FLAGYL [Suspect]
     Indication: PRODUCT USED FOR UNKNOWN INDICATION
     Dosage: 500 MG ONCE, NOT AS PRESCRIBED INTRATHECAL
     Dates: start: 20120723, end: 20120723
  2. FLAGYL [Suspect]
     Indication: MENINGOENCEPHALITIS BACTERIAL
     Dosage: 500 MG ONCE, NOT AS PRESCRIBED INTRATHECAL
     Dates: start: 20120723, end: 20120723
  3. FLAGYL [Suspect]
     Indication: PRODUCT USED FOR UNKNOWN INDICATION
     Dates: start: 20120710, end: 20120725
  4. FLAGYL [Suspect]
     Indication: MENINGOENCEPHALITIS BACTERIAL
     Dates: start: 20120710, end: 20120725

REACTIONS (1)
  - Incorrect route of drug administration [None]
